FAERS Safety Report 8363661-0 (Version None)
Quarter: 2012Q2

REPORT INFORMATION
  Report Type: 
  Country: None (occurrence: None)
  Receive Date: 20120516
  Receipt Date: 20120503
  Transmission Date: 20120825
  Serious: Yes (Hospitalization)
  Sender: FDA-Public Use
  Company Number: FR-JNJFOC-20120511023

PATIENT
  Age: 51 Year
  Sex: Male

DRUGS (2)
  1. ACETAMINOPHEN AND TRAMADOL HCL [Suspect]
     Indication: TOOTHACHE
     Route: 048
     Dates: start: 20120413, end: 20120417
  2. ASPEGIC 1000 [Concomitant]
     Indication: PROPHYLAXIS
     Route: 065

REACTIONS (2)
  - MALAISE [None]
  - LOSS OF CONSCIOUSNESS [None]
